FAERS Safety Report 10140066 (Version 1)
Quarter: 2014Q2

REPORT INFORMATION
  Report Type: Spontaneous
  Country: IL (occurrence: IL)
  Receive Date: 20140429
  Receipt Date: 20140429
  Transmission Date: 20141212
  Serious: Yes (Hospitalization, Other)
  Sender: FDA-Public Use
  Company Number: IL-ACTAVIS-2014-08199

PATIENT
  Age: 51 Year
  Sex: Male

DRUGS (1)
  1. DICLOFENAC (UNKNOWN) [Suspect]
     Indication: BACK PAIN
     Dosage: 75 MG, SINGLE
     Route: 030

REACTIONS (1)
  - Acute coronary syndrome [Recovered/Resolved]
